FAERS Safety Report 12064630 (Version 1)
Quarter: 2016Q1

REPORT INFORMATION
  Report Type: Spontaneous
  Country: US (occurrence: US)
  Receive Date: 20160210
  Receipt Date: 20160210
  Transmission Date: 20160526
  Serious: Yes (Other)
  Sender: FDA-Public Use
  Company Number: US-PRESTIGE BRANDS -1047633

PATIENT
  Sex: Female

DRUGS (1)
  1. MONISTAT 1 SIMPLE THERAPY - 1 PREFILLED OINTMENT [Suspect]
     Active Substance: TIOCONAZOLE
     Indication: VULVOVAGINAL MYCOTIC INFECTION
     Route: 067

REACTIONS (2)
  - Syncope [Unknown]
  - Pain [Unknown]
